FAERS Safety Report 10276415 (Version 1)
Quarter: 2014Q3

REPORT INFORMATION
  Report Type: Spontaneous
  Country: JP (occurrence: JP)
  Receive Date: 20140703
  Receipt Date: 20140703
  Transmission Date: 20150326
  Serious: Yes (Death)
  Sender: FDA-Public Use
  Company Number: JP-JNJFOC-20140701229

PATIENT
  Sex: Male
  Weight: 58 kg

DRUGS (20)
  1. OXYCONTIN [Concomitant]
     Active Substance: OXYCODONE HYDROCHLORIDE
     Route: 048
     Dates: start: 20130802, end: 20130911
  2. CYLOCIDE [Concomitant]
     Active Substance: CYTARABINE
     Indication: LYMPHOMA
     Route: 065
     Dates: start: 20130910, end: 20130911
  3. BAYASPIRIN [Concomitant]
     Active Substance: ASPIRIN
     Route: 048
     Dates: start: 20130219, end: 20130911
  4. MAGMITT [Concomitant]
     Active Substance: MAGNESIUM OXIDE
     Route: 048
  5. ALOXI [Concomitant]
     Active Substance: PALONOSETRON HYDROCHLORIDE
     Indication: LYMPHOMA
     Route: 065
     Dates: start: 20130910, end: 20130910
  6. DECADRON [Concomitant]
     Active Substance: DEXAMETHASONE
     Indication: LYMPHOMA
     Route: 065
     Dates: start: 20130910, end: 20130912
  7. MORPHINE HYDROCHLORIDE [Concomitant]
     Active Substance: MORPHINE HYDROCHLORIDE
     Indication: LYMPHOMA
     Route: 065
     Dates: start: 20130912, end: 20130912
  8. TAKEPRON [Concomitant]
     Active Substance: LANSOPRAZOLE
     Route: 048
     Dates: start: 20130817, end: 20130911
  9. SOLU-CORTEF [Concomitant]
     Active Substance: HYDROCORTISONE SODIUM SUCCINATE
     Indication: LYMPHOMA
     Route: 065
     Dates: start: 20130909, end: 20130909
  10. ETOPOSIDE. [Concomitant]
     Active Substance: ETOPOSIDE
     Indication: LYMPHOMA
     Route: 065
     Dates: start: 20130910, end: 20130912
  11. PANALDINE [Concomitant]
     Active Substance: TICLOPIDINE HYDROCHLORIDE
     Route: 048
     Dates: start: 20130219, end: 20130911
  12. ITRIZOLE [Suspect]
     Active Substance: ITRACONAZOLE
     Indication: ANTIFUNGAL PROPHYLAXIS
     Route: 048
     Dates: start: 20130909, end: 20130911
  13. POLAPREZINC [Concomitant]
     Route: 048
     Dates: start: 20130909, end: 20130911
  14. BOSMIN [Concomitant]
     Active Substance: EPINEPHRINE
     Indication: LYMPHOMA
     Route: 065
     Dates: start: 20130912, end: 20130912
  15. THYRADIN S [Concomitant]
     Active Substance: LEVOTHYROXINE SODIUM
     Route: 048
     Dates: start: 20130219, end: 20130911
  16. UROMITEXAN [Concomitant]
     Active Substance: MESNA
     Indication: LYMPHOMA
     Route: 065
     Dates: start: 20130910, end: 20130911
  17. LASIX [Concomitant]
     Active Substance: FUROSEMIDE
     Indication: LYMPHOMA
     Route: 065
     Dates: start: 20130910, end: 20130912
  18. RITUXAN [Concomitant]
     Active Substance: RITUXIMAB
     Indication: LYMPHOMA
     Route: 065
     Dates: start: 20130909, end: 20130909
  19. IFOMIDE [Concomitant]
     Active Substance: IFOSFAMIDE
     Indication: LYMPHOMA
     Route: 065
     Dates: start: 20130910, end: 20130911
  20. DORMICUM [Concomitant]
     Active Substance: MIDAZOLAM\MIDAZOLAM HYDROCHLORIDE
     Indication: LYMPHOMA
     Route: 065
     Dates: start: 20130912, end: 20130912

REACTIONS (2)
  - Respiratory failure [Fatal]
  - Lymphoma [Fatal]
